FAERS Safety Report 7068181-1 (Version None)
Quarter: 2010Q4

REPORT INFORMATION
  Report Type: 
  Country: None (occurrence: None)
  Receive Date: 20101028
  Receipt Date: 20101020
  Transmission Date: 20110411
  Serious: Yes (Hospitalization)
  Sender: FDA-Public Use
  Company Number: FR-AMGEN-FRANI2010000665

PATIENT

DRUGS (1)
  1. DARBEPOETIN ALFA [Suspect]
     Indication: RENAL FAILURE CHRONIC
     Dosage: 30 MG, Q2WK
     Route: 058
     Dates: start: 20090404

REACTIONS (4)
  - BLADDER DISORDER [None]
  - HAEMATURIA [None]
  - PAIN [None]
  - ULCER [None]
